FAERS Safety Report 9804402 (Version 1)
Quarter: 2014Q1

REPORT INFORMATION
  Report Type: Other
  Country: DE (occurrence: DE)
  Receive Date: 20140108
  Receipt Date: 20140108
  Transmission Date: 20141002
  Serious: Yes (Death, Life-Threatening, Hospitalization, Congenital Anomaly)
  Sender: FDA-Public Use
  Company Number: DE-NOVEN-13DE008517

PATIENT
  Age: 1 Day
  Sex: Female

DRUGS (4)
  1. PAROXETINE [Suspect]
     Indication: DEPRESSION
     Dosage: UNK
     Route: 064
     Dates: start: 20090414, end: 20090630
  2. ADALAT [Concomitant]
     Indication: PRODUCT USED FOR UNKNOWN INDICATION
     Dosage: UNK
  3. FOLIO [Concomitant]
     Indication: PRODUCT USED FOR UNKNOWN INDICATION
  4. KADEFUNGIN [Concomitant]

REACTIONS (11)
  - Death [Fatal]
  - Congenital diaphragmatic hernia [Fatal]
  - Congenital tracheomalacia [Fatal]
  - Tracheo-oesophageal fistula [Fatal]
  - Vitello-intestinal duct remnant [Fatal]
  - Patent ductus arteriosus [Fatal]
  - Oesophageal atresia [Fatal]
  - Clinodactyly [Fatal]
  - Abnormal palmar/plantar creases [Fatal]
  - Anomaly of external ear congenital [Fatal]
  - Atrial septal defect [Fatal]
